FAERS Safety Report 9912601 (Version 1)
Quarter: 2014Q1

REPORT INFORMATION
  Report Type: Spontaneous
  Country: US (occurrence: None)
  Receive Date: 20140218
  Receipt Date: 20140218
  Transmission Date: 20141002
  Serious: Yes (Other)
  Sender: FDA-Public Use
  Company Number: None

PATIENT
  Sex: Female

DRUGS (5)
  1. ARMIDEX, 1 MG, ASTRAZENECA [Suspect]
     Route: 048
     Dates: start: 20131015, end: 20140212
  2. GLUCOPHAGE 500 MG [Concomitant]
  3. LOSARTAN [Concomitant]
  4. SYNTHROID [Concomitant]
  5. MVI [Concomitant]

REACTIONS (3)
  - Weight increased [None]
  - Nausea [None]
  - Rash [None]
